FAERS Safety Report 5741930-8 (Version None)
Quarter: 2008Q2

REPORT INFORMATION
  Report Type: 
  Country: None (occurrence: None)
  Receive Date: 20080519
  Receipt Date: 20070404
  Transmission Date: 20081010
  Serious: Yes (Hospitalization)
  Sender: FDA-Public Use
  Company Number: US-KINGPHARMUSA00001-K200700412

PATIENT

DRUGS (1)
  1. TAPAZOLE [Suspect]
     Indication: HYPOTHYROIDISM
     Dosage: 10 MG, TID
     Dates: start: 20070201, end: 20070331

REACTIONS (1)
  - AGRANULOCYTOSIS [None]
